FAERS Safety Report 8758215 (Version 1)
Quarter: 2012Q4

REPORT INFORMATION
  Report Type: Spontaneous
  Country: US (occurrence: None)
  Receive Date: 20120828
  Receipt Date: 20120828
  Transmission Date: 20130627
  Serious: No
  Sender: FDA-Public Use
  Company Number: None

PATIENT
  Sex: Male
  Weight: 113.4 kg

DRUGS (2)
  1. STERILE WATER [Suspect]
     Dates: start: 20120815, end: 20120816
  2. D51 2 NS [Suspect]

REACTIONS (3)
  - Wrong drug administered [None]
  - Product packaging issue [None]
  - Drug label confusion [None]
